FAERS Safety Report 4288861-0 (Version None)
Quarter: 2004Q1

REPORT INFORMATION
  Report Type: 
  Country: None (occurrence: None)
  Receive Date: 20040205
  Receipt Date: 20040121
  Transmission Date: 20041129
  Serious: No
  Sender: FDA-Public Use
  Company Number: FR-030302099

PATIENT
  Age: 15 Day
  Sex: Male
  Weight: 4 kg

DRUGS (3)
  1. HUMALOG [Suspect]
     Dates: start: 20030201, end: 20030402
  2. INSULATARD NPH HUMAN [Concomitant]
  3. LEVOTHYROXINE SODIUM [Concomitant]

REACTIONS (3)
  - DRUG EXPOSURE DURING PREGNANCY [None]
  - FOETAL CARDIAC DISORDER [None]
  - PREMATURE BABY [None]
